FAERS Safety Report 18918376 (Version 1)
Quarter: 2021Q1

REPORT INFORMATION
  Report Type: Report from Study
  Country: US (occurrence: US)
  Receive Date: 20210219
  Receipt Date: 20210219
  Transmission Date: 20210420
  Serious: Yes (Hospitalization)
  Sender: FDA-Public Use
  Company Number: US-REGENERON PHARMACEUTICALS, INC.-2021-24649

PATIENT

DRUGS (1)
  1. CASIRIVIMAB AND IMDEVIMAB [Suspect]
     Active Substance: CASIRIVIMAB\IMDEVIMAB
     Indication: COVID-19 TREATMENT
     Dosage: UNK
     Route: 065
     Dates: start: 20210212, end: 20210212

REACTIONS (4)
  - Feeling cold [Unknown]
  - Vomiting [Unknown]
  - Diarrhoea [Unknown]
  - Blood pressure decreased [Unknown]

NARRATIVE: CASE EVENT DATE: 20210212
